FAERS Safety Report 10068797 (Version 1)
Quarter: 2014Q2

REPORT INFORMATION
  Report Type: Spontaneous
  Country: US (occurrence: US)
  Receive Date: 20140409
  Receipt Date: 20140409
  Transmission Date: 20141212
  Serious: No
  Sender: FDA-Public Use
  Company Number: US-BAYER-2014-040652

PATIENT
  Age: 65 Year
  Sex: Female

DRUGS (1)
  1. ADALAT CC [Suspect]
     Dosage: UNK
     Dates: end: 201103

REACTIONS (2)
  - Hypertension [None]
  - Drug ineffective [None]
